FAERS Safety Report 26216387 (Version 1)
Quarter: 2025Q4

REPORT INFORMATION
  Report Type: Spontaneous
  Country: GB (occurrence: GB)
  Receive Date: 20251231
  Receipt Date: 20251231
  Transmission Date: 20260118
  Serious: Yes (Other)
  Sender: TEVA
  Company Number: None

PATIENT
  Age: 28 Year
  Sex: Female
  Weight: 67 kg

DRUGS (3)
  1. PROPRANOLOL [Suspect]
     Active Substance: PROPRANOLOL HYDROCHLORIDE
     Indication: Anxiety
     Dosage: PROPRANOLOL AND SPIRONOLACTONE, PRN
     Route: 065
     Dates: start: 20251213, end: 20251220
  2. SPIRONOLACTONE [Suspect]
     Active Substance: SPIRONOLACTONE
     Indication: Anxiety
     Dosage: PROPRANOLOL AND SPIRONOLACTONE, PRN
     Route: 065
     Dates: start: 20251213, end: 20251220
  3. LISDEXAMFETAMINE [Concomitant]
     Active Substance: LISDEXAMFETAMINE
     Indication: Attention deficit hyperactivity disorder
     Dates: start: 20250201

REACTIONS (1)
  - Paranoia [Recovered/Resolved]
